FAERS Safety Report 4907960-0 (Version None)
Quarter: 2006Q1

REPORT INFORMATION
  Report Type: 
  Country: None (occurrence: None)
  Receive Date: 20060208
  Receipt Date: 20060124
  Transmission Date: 20060701
  Serious: Yes (Death, Hospitalization, Other)
  Sender: FDA-Public Use
  Company Number: 2006-US-00519

PATIENT
  Age: 79 Year
  Sex: Female

DRUGS (5)
  1. TRAMADOL HCL [Suspect]
     Indication: SCIATICA
  2. NORTRIPTYLINE HCL [Suspect]
     Indication: DEPRESSION
     Dosage: 75 MG, 1 IN 1 D
  3. ROFECOXIB [Concomitant]
  4. MORPHINE [Concomitant]
  5. COPROXAMOL (APOREX) [Concomitant]

REACTIONS (16)
  - BLOOD POTASSIUM DECREASED [None]
  - BRADYCARDIA [None]
  - COMA [None]
  - CONFUSIONAL STATE [None]
  - CONVULSION [None]
  - DELIRIUM [None]
  - FALL [None]
  - HALLUCINATION [None]
  - HYPERHIDROSIS [None]
  - HYPOTENSION [None]
  - LOSS OF CONSCIOUSNESS [None]
  - MALAISE [None]
  - METABOLIC ACIDOSIS [None]
  - SEPSIS [None]
  - SEROTONIN SYNDROME [None]
  - TACHYCARDIA [None]
